FAERS Safety Report 6913575-5 (Version None)
Quarter: 2010Q3

REPORT INFORMATION
  Report Type: 
  Country: None (occurrence: None)
  Receive Date: 20100805
  Receipt Date: 20100805
  Transmission Date: 20110219
  Serious: Yes (Other)
  Sender: FDA-Public Use
  Company Number: None

PATIENT
  Sex: Female
  Weight: 72.5755 kg

DRUGS (1)
  1. HYDROXYCHLOROQUINE SULFATE [Suspect]
     Indication: ARTHROPATHY
     Dosage: 200MG TWICE QD ORAL
     Route: 048
     Dates: start: 20100623, end: 20100719

REACTIONS (4)
  - BURNING SENSATION [None]
  - EYELID OEDEMA [None]
  - LIP SWELLING [None]
  - RASH GENERALISED [None]
